FAERS Safety Report 6332750-4 (Version None)
Quarter: 2009Q3

REPORT INFORMATION
  Report Type: 
  Country: None (occurrence: None)
  Receive Date: 20090828
  Receipt Date: 20090820
  Transmission Date: 20100115
  Serious: Yes (Hospitalization)
  Sender: FDA-Public Use
  Company Number: A0757542A

PATIENT
  Age: 28 Year
  Sex: Male

DRUGS (8)
  1. AVANDIA [Suspect]
     Dosage: 2MG PER DAY
     Route: 048
     Dates: start: 20050101, end: 20080101
  2. MEDROL [Concomitant]
  3. LASIX [Concomitant]
  4. NITROGLYCERIN [Concomitant]
  5. ZYRTEC [Concomitant]
  6. GLYTRIN [Concomitant]
  7. WELLBUTRIN [Concomitant]
  8. ZYPREXA [Concomitant]

REACTIONS (3)
  - CARDIAC FAILURE CONGESTIVE [None]
  - INJURY [None]
  - MYOCARDIAL INFARCTION [None]
